FAERS Safety Report 13629405 (Version 1)
Quarter: 2017Q2

REPORT INFORMATION
  Report Type: Spontaneous
  Country: US (occurrence: US)
  Receive Date: 20170531
  Receipt Date: 20170531
  Transmission Date: 20170830
  Serious: No
  Sender: FDA-Public Use
  Company Number: US-ASTELLAS-1167212

PATIENT
  Age: 73 Year
  Sex: Male
  Weight: 62.2 kg

DRUGS (13)
  1. LISINOPRIL. [Concomitant]
     Active Substance: LISINOPRIL
     Route: 065
  2. CLOPIDOGREL [Concomitant]
     Active Substance: CLOPIDOGREL BISULFATE
     Route: 065
  3. TRIAMCINOLON CREME [Concomitant]
  4. TARCEVA [Suspect]
     Active Substance: ERLOTINIB HYDROCHLORIDE
     Indication: PRODUCT USED FOR UNKNOWN INDICATION
     Route: 048
     Dates: start: 20120725, end: 20121108
  5. NITROGLYCERIN. [Concomitant]
     Active Substance: NITROGLYCERIN
     Route: 065
  6. PREDNISONE. [Concomitant]
     Active Substance: PREDNISONE
     Route: 065
  7. DIGOXIN. [Concomitant]
     Active Substance: DIGOXIN
     Route: 065
  8. ISOSORBIDE. [Concomitant]
     Active Substance: ISOSORBIDE
     Route: 065
  9. OMEPRAZOLE. [Concomitant]
     Active Substance: OMEPRAZOLE
     Route: 065
  10. HYDROCODEINE [Concomitant]
     Active Substance: DIHYDROCODEINE PHOSPHATE
     Dosage: 7.5/500 MG
     Route: 065
  11. ZOFRAN [Concomitant]
     Active Substance: ONDANSETRON HYDROCHLORIDE
     Route: 065
  12. GENTAMYCIN [Concomitant]
     Active Substance: GENTAMICIN
     Dosage: DROPS
     Route: 065
  13. ASA [Concomitant]
     Active Substance: ASPIRIN
     Route: 065

REACTIONS (6)
  - Drug ineffective [Unknown]
  - Ulcer [Unknown]
  - Disease progression [Unknown]
  - Vomiting [Unknown]
  - Back pain [Unknown]
  - Nasal ulcer [Unknown]

NARRATIVE: CASE EVENT DATE: 20121115
